FAERS Safety Report 12171538 (Version 1)
Quarter: 2016Q1

REPORT INFORMATION
  Report Type: Spontaneous
  Country: None (occurrence: None)
  Receive Date: 20160310
  Receipt Date: 20160310
  Transmission Date: 20160526
  Serious: Yes (Hospitalization)
  Sender: FDA-Public Use
  Company Number: None

PATIENT
  Age: 55 Year
  Sex: Female
  Weight: 79.38 kg

DRUGS (2)
  1. DOXORUBICIN HYDROCHLORIDE. [Suspect]
     Active Substance: DOXORUBICIN HYDROCHLORIDE
     Dates: end: 20160223
  2. CYCLOPHOSPHAMIDE. [Suspect]
     Active Substance: CYCLOPHOSPHAMIDE
     Dates: end: 20160223

REACTIONS (7)
  - Diarrhoea [None]
  - Oesophagitis [None]
  - Odynophagia [None]
  - Abdominal pain [None]
  - Dizziness [None]
  - Dehydration [None]
  - Hypophagia [None]

NARRATIVE: CASE EVENT DATE: 20160301
